FAERS Safety Report 6140525-4 (Version None)
Quarter: 2009Q2

REPORT INFORMATION
  Report Type: 
  Country: None (occurrence: None)
  Receive Date: 20090402
  Receipt Date: 20071121
  Transmission Date: 20091009
  Serious: Yes (Death, Hospitalization)
  Sender: FDA-Public Use
  Company Number: US-ASTRAZENECA-2006UW21560

PATIENT
  Age: 31033 Day
  Sex: Female
  Weight: 68.5 kg

DRUGS (26)
  1. SEROQUEL [Suspect]
     Route: 048
     Dates: end: 20050704
  2. SEROQUEL [Suspect]
     Dosage: 100 MG
     Route: 048
     Dates: start: 20040607
  3. METFORMIN HCL [Concomitant]
     Dates: start: 20030404
  4. CLARITIN [Concomitant]
  5. ZANTAC [Concomitant]
  6. ACTONEL [Concomitant]
  7. BEXTRA [Concomitant]
  8. NITROGLYCERIN [Concomitant]
  9. SENOKOT [Concomitant]
  10. LISINOPRIL [Concomitant]
  11. POTASSIUM CHLORIDE [Concomitant]
  12. GLYBURIDE [Concomitant]
  13. XANAX [Concomitant]
  14. AGGRENOX [Concomitant]
  15. TYLENOL [Concomitant]
  16. GUIATUSS [Concomitant]
  17. ALBUTEROL [Concomitant]
  18. SOLU-MEDROL [Concomitant]
  19. CEPHALEXIN [Concomitant]
  20. PROMETHAZINE [Concomitant]
  21. COMPAZINE [Concomitant]
  22. PREVACID [Concomitant]
  23. FUROSEMIDE [Concomitant]
  24. BIAXIN [Concomitant]
  25. HALDOL [Concomitant]
  26. ZYPREXA [Concomitant]

REACTIONS (22)
  - ANXIETY [None]
  - BLOOD OSMOLARITY DECREASED [None]
  - BRONCHITIS [None]
  - CARDIAC FAILURE CONGESTIVE [None]
  - CEREBROVASCULAR ACCIDENT [None]
  - CHRONIC OBSTRUCTIVE PULMONARY DISEASE [None]
  - CONSTIPATION [None]
  - CORONARY ARTERY DISEASE [None]
  - DEMENTIA ALZHEIMER'S TYPE [None]
  - DIABETES MELLITUS [None]
  - GAIT DISTURBANCE [None]
  - ISCHAEMIC LIMB PAIN [None]
  - MENTAL STATUS CHANGES [None]
  - MULTIPLE INJURIES [None]
  - OEDEMA PERIPHERAL [None]
  - ONYCHOMYCOSIS [None]
  - OTITIS MEDIA [None]
  - RENAL DISORDER [None]
  - SKIN INFECTION [None]
  - TRANSIENT ISCHAEMIC ATTACK [None]
  - UNRESPONSIVE TO STIMULI [None]
  - URETERAL DISORDER [None]
